FAERS Safety Report 6408746-0 (Version None)
Quarter: 2009Q4

REPORT INFORMATION
  Report Type: 
  Country: None (occurrence: None)
  Receive Date: 20091021
  Receipt Date: 20091013
  Transmission Date: 20100525
  Serious: Yes (Death, Hospitalization)
  Sender: FDA-Public Use
  Company Number: A0789754A

PATIENT
  Age: 53 Year
  Sex: Female
  Weight: 49.1 kg

DRUGS (9)
  1. AVANDIA [Suspect]
     Indication: DIABETES MELLITUS
     Dosage: 4MG PER DAY
     Route: 048
     Dates: start: 20000301, end: 20001101
  2. REZULIN [Concomitant]
  3. MORPHINE [Concomitant]
  4. GEMFIBROZIL [Concomitant]
  5. NEURONTIN [Concomitant]
  6. CLONIDINE [Concomitant]
  7. PREMARIN [Concomitant]
  8. PROVERA [Concomitant]
  9. LEVOTHYROXINE SODIUM [Concomitant]

REACTIONS (7)
  - CARDIAC DISORDER [None]
  - CARDIAC FAILURE CONGESTIVE [None]
  - CEREBROVASCULAR ACCIDENT [None]
  - CORONARY ARTERY DISEASE [None]
  - MYOCARDIAL INFARCTION [None]
  - MYOCARDIAL ISCHAEMIA [None]
  - PNEUMONIA [None]
